FAERS Safety Report 7636075-6 (Version None)
Quarter: 2011Q3

REPORT INFORMATION
  Report Type: 
  Country: None (occurrence: None)
  Receive Date: 20110726
  Receipt Date: 20110712
  Transmission Date: 20111222
  Serious: Yes (Hospitalization)
  Sender: FDA-Public Use
  Company Number: JP-ROCHE-790592

PATIENT
  Sex: Male
  Weight: 76 kg

DRUGS (18)
  1. MYCOPHENOLATE MOFETIL [Suspect]
     Route: 048
     Dates: start: 20050114, end: 20051006
  2. ALLOZYM [Concomitant]
     Route: 048
     Dates: start: 20060706
  3. MYCOPHENOLATE MOFETIL [Suspect]
     Route: 048
     Dates: start: 20001029, end: 20030130
  4. TACROLIMUS [Suspect]
     Route: 048
     Dates: start: 20001001
  5. PREDNISOLONE [Suspect]
     Route: 048
     Dates: start: 20050101, end: 20060919
  6. ENALAPRIL MALEATE [Concomitant]
     Route: 048
  7. MYCOPHENOLATE MOFETIL [Suspect]
     Route: 048
     Dates: start: 20051009, end: 20070702
  8. CLARUTE [Concomitant]
     Dosage: DRUG; CLARUTE R
     Route: 048
  9. CLARUTE [Concomitant]
     Dosage: DRUG NAME:HERBESSER
     Route: 048
  10. SULFAMETHOXAZOLE [Concomitant]
     Route: 048
  11. PREDNISOLONE [Suspect]
     Route: 048
     Dates: end: 20050101
  12. GLIMICRON [Concomitant]
     Route: 048
  13. FAMOTIDINE [Concomitant]
     Route: 048
  14. URINORM [Concomitant]
     Dosage: FREQUENCY:FOR SINGLE USE
     Route: 048
     Dates: start: 20060608, end: 20060705
  15. MYCOPHENOLATE MOFETIL [Suspect]
     Route: 048
     Dates: start: 20030131, end: 20050113
  16. PRAVASTATIN SODIUM [Concomitant]
     Dosage: FORM:PREORAL AGENT
     Route: 048
     Dates: end: 20051006
  17. BUFFERIN [Concomitant]
     Dosage: DRUG NAME:BUFFERIN 81 MG
     Route: 048
     Dates: end: 20030626
  18. LIPITOR [Concomitant]
     Route: 048

REACTIONS (5)
  - ERYTHEMA NODOSUM [None]
  - CORONARY ARTERY DISEASE [None]
  - INFLAMMATION [None]
  - DIARRHOEA [None]
  - BONE DENSITY DECREASED [None]
